FAERS Safety Report 4585780-7 (Version None)
Quarter: 2005Q1

REPORT INFORMATION
  Report Type: 
  Country: None (occurrence: None)
  Receive Date: 20050128
  Receipt Date: 20050128
  Transmission Date: 20050727
  Serious: Yes (Hospitalization, Other)
  Sender: FDA-Public Use
  Company Number: None

PATIENT
  Age: 83 Year
  Sex: Male
  Weight: 83.5 kg

DRUGS (7)
  1. HYDROXYUREA [Suspect]
     Indication: THROMBOCYTHAEMIA
     Dosage: 500 MG DAILY
  2. NOVOLIN 70/30 [Concomitant]
  3. FELODIPINE [Concomitant]
  4. LASIX [Concomitant]
  5. FOLIC ACID [Concomitant]
  6. POTASSIUM CHLORIDE [Concomitant]
  7. BRIMONIDINE [Concomitant]

REACTIONS (3)
  - ANAEMIA [None]
  - ASTHENIA [None]
  - DYSPNOEA [None]
